FAERS Safety Report 6354552-5 (Version None)
Quarter: 2009Q3

REPORT INFORMATION
  Report Type: 
  Country: None (occurrence: None)
  Receive Date: 20090914
  Receipt Date: 20090910
  Transmission Date: 20100115
  Serious: Yes (Life-Threatening)
  Sender: FDA-Public Use
  Company Number: AT-BRISTOL-MYERS SQUIBB COMPANY-14773105

PATIENT
  Age: 76 Year
  Sex: Male
  Weight: 100 kg

DRUGS (6)
  1. FOSITENS TABS 10 MG [Suspect]
     Route: 048
     Dates: start: 20071129
  2. SPIROBENE [Suspect]
     Dosage: DOSE 50 MG EACH SECOND DAY
     Route: 048
     Dates: start: 20071127
  3. LASIX [Suspect]
     Dosage: LASIX 40MG TABS
     Route: 048
     Dates: start: 20071129
  4. DILATREND [Concomitant]
     Dosage: DILATREND 25 MG TABLETS
     Route: 048
  5. LESCOL [Concomitant]
     Dosage: LESCOL MR 80 MG COATED TABLET
     Route: 048
  6. ASPIRIN [Concomitant]
     Dosage: THROMBO ASS 100 MG COATED TABLET
     Route: 048

REACTIONS (2)
  - HYPERKALAEMIA [None]
  - RENAL FAILURE [None]
